FAERS Safety Report 10044417 (Version 2)
Quarter: 2014Q2

REPORT INFORMATION
  Report Type: Spontaneous
  Country: BE (occurrence: BE)
  Receive Date: 20140328
  Receipt Date: 20140408
  Transmission Date: 20141212
  Serious: Yes (Death, Other)
  Sender: FDA-Public Use
  Company Number: BE-JNJFOC-20140313954

PATIENT
  Age: 81 Year
  Sex: Male

DRUGS (11)
  1. ZYTIGA [Suspect]
     Indication: PROSTATE CANCER METASTATIC
     Dosage: 4 TABLETS PER DAY
     Route: 048
     Dates: start: 201402
  2. PREDNISONE [Suspect]
     Indication: PROSTATE CANCER METASTATIC
     Route: 065
     Dates: start: 201402
  3. ZOLADEX [Concomitant]
     Route: 065
  4. ASAFLOW [Concomitant]
     Route: 065
  5. TOTALIP [Concomitant]
     Route: 065
  6. SPIRONOLACTONE [Concomitant]
     Route: 065
  7. LISINOPRIL [Concomitant]
     Route: 065
  8. DIPHANTOINE [Concomitant]
     Route: 065
  9. DESLORATADINE [Concomitant]
     Route: 065
  10. DUROGESIC [Concomitant]
     Indication: PAIN
     Route: 065
  11. CASODEX [Concomitant]
     Route: 065

REACTIONS (5)
  - Myocardial infarction [Fatal]
  - Cardiac failure [Unknown]
  - Lymphangiosis carcinomatosa [Unknown]
  - Urinary tract infection [Unknown]
  - Fall [Unknown]
